FAERS Safety Report 24670295 (Version 1)
Quarter: 2024Q4

REPORT INFORMATION
  Report Type: Spontaneous
  Country: US (occurrence: US)
  Receive Date: 20241127
  Receipt Date: 20241127
  Transmission Date: 20250114
  Serious: No
  Sender: BLUEPRINT MEDICINES
  Company Number: US-Blueprint Medicines Corporation-5439

PATIENT
  Age: 54 Year
  Sex: Male

DRUGS (1)
  1. AYVAKIT [Suspect]
     Active Substance: AVAPRITINIB
     Indication: Gastrointestinal stromal tumour
     Route: 065

REACTIONS (4)
  - Diarrhoea [Recovered/Resolved]
  - Constipation [Recovered/Resolved]
  - Ear infection [Recovered/Resolved]
  - Stomatitis [Recovered/Resolved]
